FAERS Safety Report 25902914 (Version 1)
Quarter: 2025Q4

REPORT INFORMATION
  Report Type: Spontaneous
  Country: AU (occurrence: AU)
  Receive Date: 20251009
  Receipt Date: 20251009
  Transmission Date: 20260118
  Serious: Yes (Hospitalization, Other)
  Sender: TAKEDA
  Company Number: AU-LUNDBECK-DKLU4020121

PATIENT
  Age: 75 Year
  Sex: Female

DRUGS (4)
  1. BRINTELLIX [Suspect]
     Active Substance: VORTIOXETINE HYDROBROMIDE
     Indication: Major depression
     Dosage: UNK
  2. BRINTELLIX [Suspect]
     Active Substance: VORTIOXETINE HYDROBROMIDE
     Dosage: UNK
  3. BRINTELLIX [Suspect]
     Active Substance: VORTIOXETINE HYDROBROMIDE
     Dosage: UNK
  4. DULOXETINE [Suspect]
     Active Substance: DULOXETINE
     Indication: Product used for unknown indication
     Dosage: UNK

REACTIONS (5)
  - Neovascular age-related macular degeneration [Recovering/Resolving]
  - Drug withdrawal syndrome [Recovering/Resolving]
  - Attention deficit hyperactivity disorder [Recovering/Resolving]
  - Osteoarthritis [Recovering/Resolving]
  - Prescribed overdose [Unknown]
